FAERS Safety Report 4899373-5 (Version None)
Quarter: 2006Q1

REPORT INFORMATION
  Report Type: 
  Country: None (occurrence: None)
  Receive Date: 20060131
  Receipt Date: 20060120
  Transmission Date: 20060701
  Serious: Yes (Life-Threatening)
  Sender: FDA-Public Use
  Company Number: 2006011065

PATIENT
  Age: 62 Year
  Sex: Male
  Weight: 53 kg

DRUGS (8)
  1. AMLODIPINE [Suspect]
     Indication: HYPERTENSION
     Dosage: 10 MG (5 MG, BID), ORAL
     Route: 048
     Dates: start: 20050813, end: 20051104
  2. ALLOPURINOL [Suspect]
     Indication: HYPERURICAEMIA
     Dosage: 200 MG (100 MG, BID), ORAL
     Route: 048
     Dates: start: 20051005, end: 20051104
  3. VANCOMYCIN [Suspect]
     Indication: BRONCHITIS BACTERIAL
     Dosage: 1 GRAM (1 GRAM, INTERVAL:  EVERY 2 DAYS), INTRAVENOUS
     Route: 042
     Dates: start: 20051013, end: 20051031
  4. LASIX [Suspect]
     Indication: NEPHROTIC SYNDROME
     Dosage: 80 MG (80 MG, QD), ORAL
     Route: 048
     Dates: start: 20050715, end: 20051104
  5. LOSARTAN POTASSIUM [Suspect]
     Indication: HYPERTENSION
     Dosage: 25 MG (25 MG, QD), ORAL
     Route: 048
     Dates: start: 20050715, end: 20051104
  6. ASPIRIN [Suspect]
     Indication: LACUNAR INFARCTION
     Dosage: 100 MG (100 MG, QD), ORAL
     Route: 048
     Dates: start: 20050722, end: 20051104
  7. CALBLOCK (AZELNIDIPINE) [Concomitant]
  8. NORMONAL (TRIPAMIDE) [Concomitant]

REACTIONS (7)
  - AGRANULOCYTOSIS [None]
  - BRONCHITIS BACTERIAL [None]
  - HYPERURICAEMIA [None]
  - LACUNAR INFARCTION [None]
  - PHARYNGOLARYNGEAL PAIN [None]
  - SPUTUM CULTURE POSITIVE [None]
  - STAPHYLOCOCCAL INFECTION [None]
